FAERS Safety Report 5069866-9 (Version None)
Quarter: 2006Q3

REPORT INFORMATION
  Report Type: 
  Country: None (occurrence: None)
  Receive Date: 20060802
  Receipt Date: 20060802
  Transmission Date: 20061208
  Serious: Yes (Hospitalization)
  Sender: FDA-Public Use
  Company Number: None

PATIENT
  Age: 48 Year
  Sex: Female
  Weight: 90.7194 kg

DRUGS (2)
  1. HYDROXYZINE [Suspect]
     Indication: HEADACHE
     Dosage: 100 MG ONCE IV
     Route: 042
     Dates: start: 20060714
  2. HYDROXYZINE [Suspect]
     Indication: NAUSEA
     Dosage: 100 MG ONCE IV
     Route: 042
     Dates: start: 20060714

REACTIONS (3)
  - CELLULITIS [None]
  - INCORRECT ROUTE OF DRUG ADMINISTRATION [None]
  - THROMBOPHLEBITIS [None]
